APPROVED DRUG PRODUCT: METHOCARBAMOL
Active Ingredient: METHOCARBAMOL
Strength: 1GM
Dosage Form/Route: TABLET;ORAL
Application: A200958 | Product #003 | TE Code: AB
Applicant: BOSTAL LLC
Approved: Dec 6, 2021 | RLD: No | RS: Yes | Type: RX